FAERS Safety Report 20804437 (Version 2)
Quarter: 2024Q1

REPORT INFORMATION
  Report Type: Report from Study
  Country: GB (occurrence: GB)
  Receive Date: 20220509
  Receipt Date: 20240220
  Transmission Date: 20240409
  Serious: Yes (Other)
  Sender: FDA-Public Use
  Company Number: GB-KOREA IPSEN Pharma-2022-11685

PATIENT
  Sex: Female

DRUGS (2)
  1. LANREOTIDE ACETATE [Suspect]
     Active Substance: LANREOTIDE ACETATE
     Indication: Neuroendocrine tumour
     Dosage: 120 MG EVERY 4 WEEKS (28 DAYS)
     Route: 058
     Dates: start: 20220901, end: 20220901
  2. OMEPRAZOLE [Concomitant]
     Active Substance: OMEPRAZOLE

REACTIONS (4)
  - Abdominal neoplasm [Unknown]
  - Malaise [Unknown]
  - Product supply issue [Unknown]
  - Abdominal discomfort [Unknown]
